FAERS Safety Report 19359468 (Version 1)
Quarter: 2021Q2

REPORT INFORMATION
  Report Type: Spontaneous
  Country: US (occurrence: US)
  Receive Date: 20210602
  Receipt Date: 20210602
  Transmission Date: 20210717
  Serious: Yes (Hospitalization, Other)
  Sender: FDA-Public Use
  Company Number: US-GENERICUS, INC.-2021GNR00011

PATIENT
  Sex: Male

DRUGS (1)
  1. TOBRAMYCIN. [Suspect]
     Active Substance: TOBRAMYCIN
     Indication: CYSTIC FIBROSIS
     Dosage: 300 MG/5 ML VIA NEBULIZER, 2X/DAY 28 DAYS ON AND 28 DAYS OFF
     Dates: start: 20200917

REACTIONS (1)
  - Illness [Not Recovered/Not Resolved]
